FAERS Safety Report 4430669-7 (Version None)
Quarter: 2004Q3

REPORT INFORMATION
  Report Type: 
  Country: None (occurrence: None)
  Receive Date: 20040818
  Receipt Date: 20040811
  Transmission Date: 20050211
  Serious: Yes (Hospitalization)
  Sender: FDA-Public Use
  Company Number: 2004CG01598

PATIENT
  Age: 51 Year
  Sex: Female
  Weight: 78 kg

DRUGS (5)
  1. NEXIUM [Suspect]
     Dates: end: 20040710
  2. APRANAX [Suspect]
     Indication: SCIATICA
     Dates: end: 20040710
  3. URBANYL [Concomitant]
  4. ACETAMINOPHEN [Concomitant]
  5. VALPROIC ACID [Concomitant]

REACTIONS (8)
  - AGITATION [None]
  - CONFUSIONAL STATE [None]
  - CONVULSION [None]
  - DISORIENTATION [None]
  - ELECTROENCEPHALOGRAM ABNORMAL [None]
  - HALLUCINATION [None]
  - INCOHERENT [None]
  - LOSS OF CONSCIOUSNESS [None]
